FAERS Safety Report 7921627-6 (Version None)
Quarter: 2011Q4

REPORT INFORMATION
  Report Type: 
  Country: None (occurrence: None)
  Receive Date: 20111117
  Receipt Date: 20111115
  Transmission Date: 20120403
  Serious: Yes (Life-Threatening, Hospitalization, Other)
  Sender: FDA-Public Use
  Company Number: US-BAYER-2011-110612

PATIENT
  Age: 52 Year
  Sex: Male

DRUGS (3)
  1. ASPIRIN [Suspect]
     Indication: INTENTIONAL OVERDOSE
     Dosage: 150 DF, ONCE
     Route: 048
  2. ALCOHOL [Concomitant]
     Dosage: 12 HOURS BEFORE
     Route: 048
  3. DIAZEPAM [Concomitant]
     Indication: PRODUCT USED FOR UNKNOWN INDICATION
     Dosage: 12 HOURS BEFORE, USUAL DOSE
     Route: 048

REACTIONS (6)
  - HYPERHIDROSIS [None]
  - METABOLIC ACIDOSIS [None]
  - HYPERCHLORAEMIA [None]
  - SOMNOLENCE [None]
  - TACHYPNOEA [None]
  - RESPIRATORY ALKALOSIS [None]
